FAERS Safety Report 7246101-4 (Version None)
Quarter: 2011Q1

REPORT INFORMATION
  Report Type: 
  Country: None (occurrence: None)
  Receive Date: 20110126
  Receipt Date: 20110126
  Transmission Date: 20110831
  Serious: Yes (Other)
  Sender: FDA-Public Use
  Company Number: A0890891A

PATIENT
  Age: 75 Year
  Sex: Female

DRUGS (11)
  1. VENTOLIN [Suspect]
     Dosage: 2PUFF AS REQUIRED
     Route: 055
  2. DIGOXIN [Concomitant]
  3. ENALAPRIL [Concomitant]
  4. HYDRALAZINE HCL [Concomitant]
  5. LIDODERM [Concomitant]
  6. FUROSEMIDE [Concomitant]
  7. TRAMADOL [Concomitant]
  8. COMBIVENT [Concomitant]
  9. ADVAIR [Concomitant]
  10. METOPROLOL [Concomitant]
  11. SPIRONOLACTONE [Concomitant]

REACTIONS (4)
  - ASTHMA [None]
  - DYSPNOEA [None]
  - INHALATION THERAPY [None]
  - PRODUCT QUALITY ISSUE [None]
